FAERS Safety Report 10596727 (Version 1)
Quarter: 2014Q4

REPORT INFORMATION
  Report Type: Spontaneous
  Country: SE (occurrence: SE)
  Receive Date: 20141120
  Receipt Date: 20141120
  Transmission Date: 20150529
  Serious: Yes (Life-Threatening, Hospitalization, Other)
  Sender: FDA-Public Use
  Company Number: SE-ASTRAZENECA-2014SE86978

PATIENT
  Age: 50 Year
  Sex: Male

DRUGS (5)
  1. GLYCERYL TRINITRATE [Concomitant]
     Active Substance: NITROGLYCERIN
  2. ARIXTRA [Concomitant]
     Active Substance: FONDAPARINUX SODIUM
     Dates: start: 20141027
  3. TROMBYL [Concomitant]
     Active Substance: ASPIRIN
     Dates: start: 20141027
  4. SOLU-CORTEF [Concomitant]
     Active Substance: HYDROCORTISONE SODIUM SUCCINATE
  5. BRILIQUE [Suspect]
     Active Substance: TICAGRELOR
     Route: 048
     Dates: start: 20141027

REACTIONS (7)
  - Platelet aggregation inhibition [Unknown]
  - Oedema [Unknown]
  - Procedural haemorrhage [Not Recovered/Not Resolved]
  - Aortic dissection [Unknown]
  - Encephalopathy [Unknown]
  - Aphasia [Unknown]
  - Motor dysfunction [Unknown]

NARRATIVE: CASE EVENT DATE: 20141027
